FAERS Safety Report 5216973-3 (Version None)
Quarter: 2007Q1

REPORT INFORMATION
  Report Type: 
  Country: None (occurrence: None)
  Receive Date: 20070124
  Receipt Date: 20070115
  Transmission Date: 20070707
  Serious: Yes (Hospitalization, Other)
  Sender: FDA-Public Use
  Company Number: JP-BAYER-200710016BYL

PATIENT
  Age: 74 Year
  Sex: Female
  Weight: 50 kg

DRUGS (14)
  1. BAY43-9006 [Suspect]
     Indication: RENAL CELL CARCINOMA STAGE UNSPECIFIED
     Route: 048
     Dates: start: 20050307, end: 20050322
  2. BAY43-9006 [Suspect]
     Route: 048
     Dates: start: 20050406, end: 20070109
  3. ITOROL [Concomitant]
     Indication: ANGINA PECTORIS
     Route: 048
  4. SIGMART [Concomitant]
     Indication: ANGINA PECTORIS
     Route: 048
  5. NORVASC [Concomitant]
     Indication: HYPERTENSION
     Route: 048
     Dates: start: 20050823
  6. SOLITA-T NO.3-G [Concomitant]
     Route: 065
  7. VITAMEDIN [Concomitant]
     Route: 048
  8. ENSURE H [Concomitant]
     Indication: DEHYDRATION
     Route: 065
     Dates: start: 20070104
  9. KENTAN [Concomitant]
     Indication: ABDOMINAL PAIN
     Route: 048
  10. LOXONIN [Concomitant]
     Indication: ABDOMINAL PAIN
     Route: 048
  11. MUCOSTA [Concomitant]
     Indication: GASTRITIS PROPHYLAXIS
     Route: 048
  12. DERMOVATE [Concomitant]
     Indication: RASH
     Route: 062
  13. SAHNE [Concomitant]
     Indication: RASH
     Route: 062
  14. LAC-B [Concomitant]
     Indication: DIARRHOEA
     Route: 048

REACTIONS (5)
  - ARRHYTHMIA [None]
  - CARDIAC FAILURE CONGESTIVE [None]
  - DEHYDRATION [None]
  - HYPOPROTEINAEMIA [None]
  - RASH [None]
